FAERS Safety Report 7366610-7 (Version None)
Quarter: 2011Q1

REPORT INFORMATION
  Report Type: 
  Country: None (occurrence: None)
  Receive Date: 20110322
  Receipt Date: 20110314
  Transmission Date: 20110831
  Serious: Yes (Other)
  Sender: FDA-Public Use
  Company Number: US-AMGEN-USASP2011011742

PATIENT
  Age: 34 Year
  Sex: Male
  Weight: 124.72 kg

DRUGS (2)
  1. ENBREL [Suspect]
     Indication: SUBCORNEAL PUSTULAR DERMATOSIS
     Dosage: 50 MG, 2 TIMES/WK
     Route: 058
     Dates: start: 20101007
  2. METOTREXATE [Concomitant]

REACTIONS (6)
  - DEPRESSION [None]
  - FEELING ABNORMAL [None]
  - SKIN ULCER [None]
  - PRURITUS [None]
  - BLISTER [None]
  - THERAPEUTIC RESPONSE DECREASED [None]
